FAERS Safety Report 13366190 (Version 3)
Quarter: 2017Q2

REPORT INFORMATION
  Report Type: Spontaneous
  Country: GB (occurrence: GB)
  Receive Date: 20170323
  Receipt Date: 20170510
  Transmission Date: 20170830
  Serious: Yes (Other)
  Sender: FDA-Public Use
  Company Number: GB-ABBVIE-17P-167-1918413-00

PATIENT
  Sex: Female

DRUGS (4)
  1. SALBUTAMOL [Concomitant]
     Active Substance: ALBUTEROL
     Indication: PRODUCT USED FOR UNKNOWN INDICATION
     Dates: start: 2010
  2. BETAHISTINE [Concomitant]
     Active Substance: BETAHISTINE
     Indication: PRODUCT USED FOR UNKNOWN INDICATION
     Dates: start: 2010
  3. EPILIM [Suspect]
     Active Substance: VALPROATE SODIUM
     Route: 065
  4. EPILIM [Suspect]
     Active Substance: VALPROATE SODIUM
     Indication: EPILEPSY
     Route: 065

REACTIONS (16)
  - Menstruation irregular [Unknown]
  - Dry skin [Unknown]
  - Loss of consciousness [Unknown]
  - Photopsia [Unknown]
  - Fatigue [Unknown]
  - Rash [Unknown]
  - Hair growth abnormal [Unknown]
  - Abdominal discomfort [Unknown]
  - Pruritus [Unknown]
  - Cerebral disorder [Unknown]
  - Arthralgia [Unknown]
  - Contusion [Unknown]
  - Urticaria [Unknown]
  - Epilepsy [Unknown]
  - Feeling abnormal [Unknown]
  - Erythema [Unknown]

NARRATIVE: CASE EVENT DATE: 20041204
